FAERS Safety Report 7096987-1 (Version None)
Quarter: 2010Q4

REPORT INFORMATION
  Report Type: 
  Country: None (occurrence: None)
  Receive Date: 20101111
  Receipt Date: 20101104
  Transmission Date: 20110411
  Serious: No
  Sender: FDA-Public Use
  Company Number: US-B.I. PHARMACEUTICALS,INC./RIDGEFIELD-2010-BP-12409BP

PATIENT
  Sex: Male

DRUGS (5)
  1. SPIRIVA [Suspect]
     Indication: DYSPNOEA
     Dosage: 18 MCG
     Route: 055
     Dates: start: 20100701
  2. QVAR 40 [Concomitant]
     Indication: DYSPNOEA
  3. AMLODIPINE [Concomitant]
     Indication: HYPERTENSION
  4. CARVEDILOL [Concomitant]
     Indication: HYPERTENSION
  5. FLOMAX [Concomitant]
     Indication: PROSTATIC DISORDER

REACTIONS (3)
  - DYSPNOEA [None]
  - DYSURIA [None]
  - VISUAL IMPAIRMENT [None]
